FAERS Safety Report 9966139 (Version 1)
Quarter: 2014Q1

REPORT INFORMATION
  Report Type: Report from Study
  Country: US (occurrence: US)
  Receive Date: 20140305
  Receipt Date: 20140305
  Transmission Date: 20141002
  Serious: No
  Sender: FDA-Public Use
  Company Number: US-ABBVIE-13P-163-1122181-00

PATIENT
  Age: 40 Year
  Sex: Female

DRUGS (5)
  1. HUMIRA [Suspect]
     Indication: PSORIASIS
     Dates: start: 200810
  2. HUMIRA [Suspect]
     Dates: start: 20110623, end: 201207
  3. HUMIRA [Suspect]
     Dates: start: 201207, end: 201208
  4. HUMIRA [Suspect]
     Dates: start: 201208
  5. STELARA [Suspect]
     Indication: PRODUCT USED FOR UNKNOWN INDICATION

REACTIONS (5)
  - Psoriasis [Unknown]
  - Ear infection [Unknown]
  - Pustular psoriasis [Unknown]
  - Psoriasis [Unknown]
  - Psoriasis [Not Recovered/Not Resolved]
